FAERS Safety Report 8490994-X (Version None)
Quarter: 2012Q3

REPORT INFORMATION
  Report Type: 
  Country: None (occurrence: None)
  Receive Date: 20120706
  Receipt Date: 20120702
  Transmission Date: 20120928
  Serious: Yes (Death, Life-Threatening, Hospitalization, Other)
  Sender: FDA-Public Use
  Company Number: FR-ELI_LILLY_AND_COMPANY-FR201207000179

PATIENT
  Sex: Male

DRUGS (2)
  1. CARBOPLATIN [Concomitant]
     Indication: BLADDER NEOPLASM
     Dosage: 410 MG, OTHER
     Dates: start: 20120525, end: 20120525
  2. GEMZAR [Suspect]
     Indication: BLADDER NEOPLASM
     Dosage: 2000 MG, UNKNOWN
     Route: 042
     Dates: start: 20120525, end: 20120601

REACTIONS (11)
  - FEBRILE BONE MARROW APLASIA [None]
  - HAEMATURIA [None]
  - ANURIA [None]
  - SIGMOIDITIS [None]
  - HYPERKALAEMIA [None]
  - SYSTEMIC CANDIDA [None]
  - PANCYTOPENIA [None]
  - BLOOD CREATININE INCREASED [None]
  - SEPTIC SHOCK [None]
  - MULTI-ORGAN FAILURE [None]
  - HYPOTENSION [None]
